FAERS Safety Report 19581288 (Version 1)
Quarter: 2021Q3

REPORT INFORMATION
  Report Type: Spontaneous
  Country: US (occurrence: US)
  Receive Date: 20210719
  Receipt Date: 20210719
  Transmission Date: 20211014
  Serious: No
  Sender: FDA-Public Use
  Company Number: None

PATIENT
  Age: 21 Year
  Sex: Female
  Weight: 76.5 kg

DRUGS (2)
  1. AVEENO PROTECT PLUS HYDRATE SUNSCREEN BROAD SPECTRUM BODY SPF 60 [Suspect]
     Active Substance: AVOBENZONE\HOMOSALATE\OCTISALATE\OCTOCRYLENE
     Indication: PROPHYLAXIS AGAINST SOLAR RADIATION
     Route: 061
     Dates: start: 20210526, end: 20210527
  2. PROAIR HFA [Concomitant]
     Active Substance: ALBUTEROL SULFATE

REACTIONS (5)
  - Application site pain [None]
  - Rash erythematous [None]
  - Rash [None]
  - Pruritus [None]
  - Product quality issue [None]

NARRATIVE: CASE EVENT DATE: 20210526
